FAERS Safety Report 4891643-X (Version None)
Quarter: 2005Q4

REPORT INFORMATION
  Report Type: 
  Country: None (occurrence: None)
  Receive Date: 20051220
  Receipt Date: 20050922
  Transmission Date: 20060501
  Serious: Yes (Other)
  Sender: FDA-Public Use
  Company Number: 418845

PATIENT
  Age: 65 Year
  Sex: Female
  Weight: 66.7 kg

DRUGS (5)
  1. BONIVA [Suspect]
     Indication: OSTEOPOROSIS
     Dosage: 150 MG 1 PER MONTH ORAL
     Route: 048
     Dates: start: 20050720
  2. ACCURPIL (CHINAPRYL) [Concomitant]
  3. ASPIRIN [Concomitant]
  4. TRICOR [Concomitant]
  5. EFFEXOR XR [Concomitant]

REACTIONS (5)
  - BALANCE DISORDER [None]
  - CHEST PAIN [None]
  - FALL [None]
  - GASTROOESOPHAGEAL REFLUX DISEASE [None]
  - HEADACHE [None]
